FAERS Safety Report 7913355-8 (Version None)
Quarter: 2011Q4

REPORT INFORMATION
  Report Type: 
  Country: None (occurrence: None)
  Receive Date: 20111114
  Receipt Date: 20111101
  Transmission Date: 20120403
  Serious: Yes (Hospitalization, Other)
  Sender: FDA-Public Use
  Company Number: US-ELI_LILLY_AND_COMPANY-US201108000135

PATIENT
  Sex: Female

DRUGS (10)
  1. PLAVIX [Concomitant]
  2. SPIRIVA [Concomitant]
  3. TRAMADOL HCL [Concomitant]
  4. XOPENEX [Concomitant]
  5. PREDNISONE [Concomitant]
  6. PLAQUENIL [Concomitant]
  7. ACCUPRIL [Concomitant]
  8. NORVASC [Concomitant]
  9. PROZAC [Concomitant]
  10. FORTEO [Suspect]
     Indication: OSTEOPOROSIS
     Dosage: 20 UG, QD

REACTIONS (5)
  - STENT PLACEMENT [None]
  - INTRACRANIAL ANEURYSM [None]
  - WEIGHT DECREASED [None]
  - MALAISE [None]
  - BONE DENSITY DECREASED [None]
